FAERS Safety Report 5722285-1 (Version None)
Quarter: 2008Q2

REPORT INFORMATION
  Report Type: 
  Country: None (occurrence: None)
  Receive Date: 20080429
  Receipt Date: 20070814
  Transmission Date: 20081010
  Serious: No
  Sender: FDA-Public Use
  Company Number: US-ASTRAZENECA-2007UW19615

PATIENT
  Age: 68 Year
  Sex: Male
  Weight: 122.5 kg

DRUGS (14)
  1. NEXIUM [Suspect]
     Indication: THROAT IRRITATION
     Dosage: ONE CAPSULE
     Route: 048
  2. NEXIUM [Suspect]
     Dosage: TWO  CAPSULES
     Route: 048
  3. METFORMIN HCL [Concomitant]
  4. GLIPIZIDE [Concomitant]
  5. ACTOS [Concomitant]
  6. METOPROLOL TARTRATE [Concomitant]
  7. ENALAPRIL MALEATE [Concomitant]
  8. NORVASC [Concomitant]
  9. FLOMAX [Concomitant]
  10. PROSCAR [Concomitant]
  11. PAXIL [Concomitant]
  12. VALIUM [Concomitant]
  13. PRAVACHOL [Concomitant]
  14. ASPIRIN [Concomitant]

REACTIONS (4)
  - BLOOD DISORDER [None]
  - DRY MOUTH [None]
  - DRY THROAT [None]
  - WEIGHT INCREASED [None]
